FAERS Safety Report 18376345 (Version 3)
Quarter: 2022Q4

REPORT INFORMATION
  Report Type: Report from Study
  Country: RO (occurrence: RO)
  Receive Date: 20201013
  Receipt Date: 20221028
  Transmission Date: 20230112
  Serious: Yes (Death, Hospitalization, Other)
  Sender: FDA-Public Use
  Company Number: None

PATIENT
  Age: 62 Year
  Sex: Male

DRUGS (2)
  1. ENTRESTO [Suspect]
     Active Substance: SACUBITRIL\VALSARTAN
     Indication: Ejection fraction decreased
     Dosage: 1 DOSAGE FORM (49/51 MG)
     Route: 065
     Dates: start: 201809, end: 201812
  2. RAMIPRIL [Suspect]
     Active Substance: RAMIPRIL
     Indication: Product used for unknown indication
     Dosage: UNK
     Route: 065

REACTIONS (5)
  - Cardio-respiratory arrest [Fatal]
  - Lung disorder [Unknown]
  - Cholelithiasis [Unknown]
  - Illness [Unknown]
  - Contraindicated product administered [Unknown]

NARRATIVE: CASE EVENT DATE: 20190101
